FAERS Safety Report 8393989-X (Version None)
Quarter: 2012Q2

REPORT INFORMATION
  Report Type: 
  Country: None (occurrence: None)
  Receive Date: 20120523
  Receipt Date: 20120509
  Transmission Date: 20120825
  Serious: Yes (Hospitalization)
  Sender: FDA-Public Use
  Company Number: 2012000113

PATIENT
  Age: 89 Year
  Sex: Female

DRUGS (9)
  1. NEO-MERCAZOLE TAB [Concomitant]
  2. ACEON [Suspect]
     Indication: PRODUCT USED FOR UNKNOWN INDICATION
     Dosage: 5 MG, QD, ORAL
     Route: 048
     Dates: start: 20111206, end: 20120120
  3. MEMANTINE HCL [Concomitant]
  4. FENOFIBRATE [Concomitant]
  5. FOSAMAX [Concomitant]
  6. FUROSEMIDE [Suspect]
     Indication: PRODUCT USED FOR UNKNOWN INDICATION
     Dosage: 40 MG, QD, ORAL
     Route: 048
     Dates: start: 20111206, end: 20120119
  7. PREVISCAN (FLUINDIONE) [Concomitant]
  8. CACIT VITAMINE D3 (CALCIUM CARBONATE, COLECALCIFEROL) [Concomitant]
  9. PREDNISONE TAB [Concomitant]

REACTIONS (5)
  - CHEST X-RAY ABNORMAL [None]
  - CYSTITIS ESCHERICHIA [None]
  - HYPOTENSION [None]
  - RENAL FAILURE ACUTE [None]
  - ATRIAL FIBRILLATION [None]
